FAERS Safety Report 8300806-2 (Version None)
Quarter: 2012Q2

REPORT INFORMATION
  Report Type: 
  Country: None (occurrence: None)
  Receive Date: 20120420
  Receipt Date: 20120418
  Transmission Date: 20120825
  Serious: Yes (Hospitalization, Other)
  Sender: FDA-Public Use
  Company Number: PHEH2007US14844

PATIENT
  Sex: Female
  Weight: 64.399 kg

DRUGS (35)
  1. PROCRIT                            /00909301/ [Concomitant]
     Dosage: 40000 U, QW
     Route: 058
     Dates: start: 20020901
  2. LOPRESSOR [Concomitant]
  3. PERCOCET [Concomitant]
  4. METHYLMETHACRYLATE [Concomitant]
  5. MAGNEVIST [Concomitant]
  6. ZOMETA [Suspect]
     Dosage: 4 MG, QMO
     Route: 042
  7. VELCADE [Concomitant]
  8. EVISTA [Concomitant]
     Indication: OSTEOPOROSIS
  9. PREMPRO [Concomitant]
     Dosage: 0.45/1.5 MG DAILY
  10. MAG-OX [Concomitant]
  11. PREVACID [Concomitant]
  12. DETROL [Concomitant]
  13. DOLOPHINE HCL [Concomitant]
     Dosage: 10 MG, BID
  14. LASIX [Concomitant]
     Route: 042
     Dates: start: 20081008
  15. LOPERAMIDE [Concomitant]
     Dosage: 2 MG, UNK
  16. IMIPRAMINE [Concomitant]
     Dosage: 25 MG, UNK
  17. FERROUS SULFATE TAB [Concomitant]
     Indication: ANAEMIA
     Dosage: 325 MG, UNK
     Dates: start: 20000505
  18. THALOMID [Concomitant]
  19. COUMADIN [Concomitant]
     Dosage: 1 MG, QD
  20. DEXAMETHASONE [Concomitant]
     Dosage: 40 MG, QD
     Dates: start: 20000701
  21. NPH INSULIN [Concomitant]
  22. ACYCLOVIR [Concomitant]
     Indication: ANTIVIRAL PROPHYLAXIS
  23. CLONAZEPAM [Concomitant]
     Dosage: 0.5 MG, UNK
  24. FOSAMAX [Concomitant]
     Indication: OSTEOPOROSIS
  25. ARANESP [Concomitant]
     Dosage: 200 MCG
  26. PRILOSEC [Concomitant]
     Dosage: 40 MG, QD
  27. AREDIA [Suspect]
     Indication: HYPERCALCAEMIA
     Dosage: 90 MG, QMO
     Route: 042
     Dates: start: 20000523, end: 20020401
  28. ZOMETA [Suspect]
     Dosage: UNK
     Dates: end: 20110401
  29. REVLIMID [Concomitant]
     Dosage: 25 MG, QD
  30. KYTRIL [Concomitant]
     Dosage: 1 MG, UNK
  31. NAPROSYN [Concomitant]
     Dosage: 500 MG, Q12H
     Route: 048
  32. BLOOD TRANSFUSION, AUXILIARY PRODUCTS [Concomitant]
  33. LEVAQUIN [Concomitant]
  34. DECADRON [Concomitant]
  35. KLONOPIN [Concomitant]
     Dosage: 1 DF, QHS
     Route: 048

REACTIONS (98)
  - CYSTOCELE [None]
  - PAIN IN JAW [None]
  - OSTEOPOROSIS [None]
  - MICTURITION URGENCY [None]
  - RASH [None]
  - HOT FLUSH [None]
  - COUGH [None]
  - PAROXYSMAL ARRHYTHMIA [None]
  - EMBOLISM [None]
  - PANCYTOPENIA [None]
  - CARDIAC FAILURE CONGESTIVE [None]
  - GENERAL PHYSICAL HEALTH DETERIORATION [None]
  - ECCHYMOSIS [None]
  - ATROPHIC VULVOVAGINITIS [None]
  - EXCORIATION [None]
  - GINGIVAL DISORDER [None]
  - GINGIVAL ERYTHEMA [None]
  - PELVIC DISCOMFORT [None]
  - MUSCULOSKELETAL CHEST PAIN [None]
  - VISION BLURRED [None]
  - WEIGHT DECREASED [None]
  - CHEST DISCOMFORT [None]
  - FEMORAL NECK FRACTURE [None]
  - GASTRITIS [None]
  - GASTRITIS HAEMORRHAGIC [None]
  - DYSPHAGIA [None]
  - CONTUSION [None]
  - CHOLELITHIASIS [None]
  - OSTEONECROSIS OF JAW [None]
  - DIABETES MELLITUS [None]
  - STRESS URINARY INCONTINENCE [None]
  - URINARY HESITATION [None]
  - NEUROPATHY PERIPHERAL [None]
  - WHEEZING [None]
  - ARTHRITIS [None]
  - PERIORBITAL HAEMATOMA [None]
  - FATIGUE [None]
  - PAIN [None]
  - PERIODONTITIS [None]
  - DEFORMITY [None]
  - ARTHRALGIA [None]
  - NOCTURIA [None]
  - SINUS TACHYCARDIA [None]
  - EMPHYSEMA [None]
  - CONSTIPATION [None]
  - RIB FRACTURE [None]
  - OROPHARYNGEAL PAIN [None]
  - NECK PAIN [None]
  - PULMONARY CONGESTION [None]
  - SOMNOLENCE [None]
  - RASH MACULAR [None]
  - DYSPNOEA EXERTIONAL [None]
  - SPINAL COMPRESSION FRACTURE [None]
  - THROMBOCYTOPENIA [None]
  - LEUKOPENIA [None]
  - RENAL CYST [None]
  - NEPHROPATHY [None]
  - PNEUMONIA [None]
  - DERMATITIS [None]
  - ABDOMINAL PAIN [None]
  - INFECTION [None]
  - DEPRESSION [None]
  - PELVIC PROLAPSE [None]
  - STOMATITIS [None]
  - BONE PAIN [None]
  - CHILLS [None]
  - PYREXIA [None]
  - ASTHENIA [None]
  - RHINORRHOEA [None]
  - SWELLING [None]
  - OEDEMA [None]
  - FRACTURE DISPLACEMENT [None]
  - MALAISE [None]
  - UTEROVAGINAL PROLAPSE [None]
  - URINARY INCONTINENCE [None]
  - HEPATOMEGALY [None]
  - EPISTAXIS [None]
  - KYPHOSIS [None]
  - HEPATIC STEATOSIS [None]
  - PANCREATIC DUCT DILATATION [None]
  - INSOMNIA [None]
  - INSPIRATORY CAPACITY DECREASED [None]
  - OBESITY [None]
  - SPINAL OSTEOARTHRITIS [None]
  - DIABETIC KETOACIDOSIS [None]
  - URINARY TRACT INFECTION [None]
  - POLLAKIURIA [None]
  - ALOPECIA AREATA [None]
  - DIARRHOEA [None]
  - INFLAMMATION [None]
  - DYSPEPSIA [None]
  - HYPOKALAEMIA [None]
  - CELLULITIS [None]
  - ABSCESS LIMB [None]
  - ATELECTASIS [None]
  - BRONCHITIS [None]
  - PNEUMOTHORAX [None]
  - BACK PAIN [None]
